FAERS Safety Report 4883363-2 (Version None)
Quarter: 2006Q1

REPORT INFORMATION
  Report Type: 
  Country: None (occurrence: None)
  Receive Date: 20060118
  Receipt Date: 20060102
  Transmission Date: 20060701
  Serious: Yes (Death)
  Sender: FDA-Public Use
  Company Number: 2006SE00053

PATIENT
  Age: 20311 Day
  Sex: Male

DRUGS (4)
  1. BLOPRESID [Suspect]
     Indication: HYPERTENSION
     Route: 048
     Dates: start: 20050601, end: 20051213
  2. TICLOPIDINE HCL [Suspect]
     Indication: MYOCARDIAL ISCHAEMIA
     Route: 048
     Dates: start: 20051122, end: 20051213
  3. ATENOLOL [Concomitant]
     Route: 048
  4. NITROCOR [Concomitant]
     Route: 065

REACTIONS (11)
  - CORONARY ARTERY INSUFFICIENCY [None]
  - HAEMOGLOBIN DECREASED [None]
  - HAEMOPTYSIS [None]
  - HAEMORRHAGE [None]
  - MELAENA [None]
  - PYREXIA [None]
  - RESUSCITATION [None]
  - SHOCK [None]
  - TACHYCARDIA [None]
  - THROMBOCYTOPENIC PURPURA [None]
  - VERTIGO [None]
